FAERS Safety Report 16372542 (Version 1)
Quarter: 2019Q2

REPORT INFORMATION
  Report Type: Spontaneous
  Country: ES (occurrence: ES)
  Receive Date: 20190530
  Receipt Date: 20190530
  Transmission Date: 20190711
  Serious: Yes (Other)
  Sender: FDA-Public Use
  Company Number: PHHY2019ES123956

PATIENT
  Age: 32 Year
  Sex: Female

DRUGS (1)
  1. COLIRCUSI GENTADEXA [Suspect]
     Active Substance: DEXAMETHASONE SODIUM PHOSPHATE\GENTAMICIN SULFATE\TETRAHYDROZOLINE HYDROCHLORIDE
     Indication: CONJUNCTIVITIS
     Dosage: UNK
     Route: 047
     Dates: start: 20150816

REACTIONS (8)
  - Dry eye [Not Recovered/Not Resolved]
  - Pinguecula [Not Recovered/Not Resolved]
  - Paraesthesia [Not Recovered/Not Resolved]
  - Conjunctival hyperaemia [Not Recovered/Not Resolved]
  - Blepharitis [Not Recovered/Not Resolved]
  - Trigeminal neuralgia [Not Recovered/Not Resolved]
  - Eye irritation [Not Recovered/Not Resolved]
  - Palpitations [Not Recovered/Not Resolved]

NARRATIVE: CASE EVENT DATE: 20150816
